FAERS Safety Report 8248824-7 (Version None)
Quarter: 2012Q2

REPORT INFORMATION
  Report Type: 
  Country: None (occurrence: None)
  Receive Date: 20120401
  Receipt Date: 20120322
  Transmission Date: 20120825
  Serious: Yes (Other)
  Sender: FDA-Public Use
  Company Number: PHHY2012NZ019965

PATIENT
  Sex: Male

DRUGS (3)
  1. CLOZARIL [Suspect]
     Dates: start: 20120308, end: 20120315
  2. OLANZAPINE [Concomitant]
     Indication: PSYCHOTIC DISORDER
     Dosage: 10 MG, NOCTE
     Route: 048
     Dates: start: 20110501
  3. CLOZARIL [Suspect]
     Indication: SCHIZOPHRENIA
     Dosage: 300 MG, BID
     Route: 048
     Dates: start: 20111215, end: 20111228

REACTIONS (3)
  - TROPONIN T INCREASED [None]
  - MYOCARDITIS [None]
  - TACHYCARDIA [None]
